FAERS Safety Report 7956499-7 (Version None)
Quarter: 2011Q4

REPORT INFORMATION
  Report Type: 
  Country: None (occurrence: None)
  Receive Date: 20111205
  Receipt Date: 20111124
  Transmission Date: 20120403
  Serious: Yes (Hospitalization)
  Sender: FDA-Public Use
  Company Number: JP-EISAI INC-E3810-05115-SPO-JP

PATIENT
  Sex: Female

DRUGS (10)
  1. RABEPRAZOLE SODIUM [Suspect]
     Route: 048
     Dates: start: 20101207, end: 20110106
  2. JUVELA N [Concomitant]
     Route: 048
     Dates: start: 20101207
  3. RABEPRAZOLE SODIUM [Suspect]
     Route: 048
     Dates: start: 20110121, end: 20111031
  4. ASPIRIN [Concomitant]
     Route: 048
     Dates: start: 20101207
  5. SIMVASTATIN [Concomitant]
     Indication: HYPERLIPIDAEMIA
     Route: 048
     Dates: start: 20101207, end: 20110106
  6. MECOBALAMIN [Concomitant]
     Route: 048
     Dates: start: 20101207
  7. ALUSA [Concomitant]
     Route: 048
     Dates: start: 20101207
  8. VITAMEDIN [Concomitant]
     Route: 048
     Dates: start: 20101207
  9. CANDESARTAN CILEXETIL [Concomitant]
     Indication: HYPERTENSION
     Route: 048
     Dates: start: 20101207
  10. LIVALO [Concomitant]
     Route: 048
     Dates: start: 20110121

REACTIONS (2)
  - PANCREATITIS [None]
  - LIVER DISORDER [None]
